FAERS Safety Report 9266342 (Version 1)
Quarter: 2013Q2

REPORT INFORMATION
  Report Type: Spontaneous
  Country: US (occurrence: US)
  Receive Date: 20130502
  Receipt Date: 20130502
  Transmission Date: 20140414
  Serious: No
  Sender: FDA-Public Use
  Company Number: US-BIOGENIDEC-2013BI037303

PATIENT
  Age: 53 Year
  Sex: Female

DRUGS (1)
  1. AVONEX [Suspect]
     Indication: MULTIPLE SCLEROSIS
     Route: 030
     Dates: start: 20130312

REACTIONS (9)
  - Dyspnoea [Recovered/Resolved]
  - Memory impairment [Recovered/Resolved with Sequelae]
  - Fatigue [Recovered/Resolved]
  - Influenza like illness [Recovered/Resolved]
  - Drug dose omission [Unknown]
  - Disturbance in attention [Unknown]
  - Speech disorder [Recovered/Resolved]
  - Injection site atrophy [Not Recovered/Not Resolved]
  - Tremor [Recovered/Resolved with Sequelae]
